FAERS Safety Report 14371060 (Version 5)
Quarter: 2018Q1

REPORT INFORMATION
  Report Type: Report from Study
  Country: FR (occurrence: FR)
  Receive Date: 20180110
  Receipt Date: 20180124
  Transmission Date: 20180509
  Serious: Yes (Hospitalization, Other)
  Sender: FDA-Public Use
  Company Number: FR-CONCORDIA PHARMACEUTICALS INC.-GSH201801-000100

PATIENT
  Sex: Female

DRUGS (1)
  1. DIGOXIN. [Suspect]
     Active Substance: DIGOXIN

REACTIONS (11)
  - Decreased appetite [Unknown]
  - Cardioactive drug level increased [Unknown]
  - Acute kidney injury [Unknown]
  - Weight decreased [Unknown]
  - Toxicity to various agents [Unknown]
  - Bradycardia [Unknown]
  - Overdose [Unknown]
  - Exposure during pregnancy [Unknown]
  - Live birth [Unknown]
  - Vomiting [Unknown]
  - Atrioventricular block [Unknown]
